FAERS Safety Report 15480462 (Version 1)
Quarter: 2018Q4

REPORT INFORMATION
  Report Type: Spontaneous
  Country: CN (occurrence: CN)
  Receive Date: 20181009
  Receipt Date: 20181009
  Transmission Date: 20190205
  Serious: Yes (Other)
  Sender: FDA-Public Use
  Company Number: CN-BAXTER-2018BAX025044

PATIENT
  Age: 33 Year
  Sex: Female
  Weight: 38.5 kg

DRUGS (7)
  1. ENDOXAN [Suspect]
     Active Substance: CYCLOPHOSPHAMIDE
     Route: 041
     Dates: start: 20180809, end: 20180809
  2. 0.9% SODIUM CHLORIDE INJECTION [Suspect]
     Active Substance: SODIUM CHLORIDE
     Dosage: SODIUM CHLORIDE INJECTION 250ML+GANICLOVIR 0.25G
     Route: 065
     Dates: start: 20180731, end: 20180805
  3. ENDOXAN [Suspect]
     Active Substance: CYCLOPHOSPHAMIDE
     Dosage: SODIUM CHLORIDE INJECTION 250ML+CYCLOPHOSPHAMIDE FOR INJECTION 0.4G, DOSE RE-INTRODUCED
     Route: 041
     Dates: start: 20180807, end: 20180807
  4. 0.9% SODIUM CHLORIDE INJECTION [Suspect]
     Active Substance: SODIUM CHLORIDE
     Dosage: SODIUM CHLORIDE INJECTION 250ML+CYCLOPHOSPHAMIDE FOR INJECTION 0.4G, DOSE RE-INTRODUCED
     Route: 041
     Dates: start: 20180807, end: 20180807
  5. ENDOXAN [Suspect]
     Active Substance: CYCLOPHOSPHAMIDE
     Indication: SYSTEMIC LUPUS ERYTHEMATOSUS
     Dosage: SODIUM CHLORIDE INJECTION 250ML+CYCLOPHOSPHAMIDE FOR INJECTION 0.4G
     Route: 041
     Dates: start: 20180722, end: 20180722
  6. 0.9% SODIUM CHLORIDE INJECTION [Suspect]
     Active Substance: SODIUM CHLORIDE
     Indication: MEDICATION DILUTION
     Dosage: SODIUM CHLORIDE INJECTION 250ML+CYCLOPHOSPHAMIDE FOR INJECTION 0.4G
     Route: 041
     Dates: start: 20180722, end: 20180722
  7. GANCICLOVIR. [Suspect]
     Active Substance: GANCICLOVIR
     Indication: RESPIRATORY TRACT INFECTION
     Dosage: SODIUM CHLORIDE INJECTION 250ML+GANICLOVIR 0.25G
     Route: 065
     Dates: start: 20180731, end: 20180805

REACTIONS (2)
  - Leukopenia [Recovering/Resolving]
  - Respiratory tract infection [Unknown]

NARRATIVE: CASE EVENT DATE: 201807
